FAERS Safety Report 8575102 (Version 2)
Quarter: 2013Q2

REPORT INFORMATION
  Report Type: Spontaneous
  Country: US (occurrence: US)
  Receive Date: 20120523
  Receipt Date: 20130516
  Transmission Date: 20140414
  Serious: Yes (Hospitalization)
  Sender: FDA-Public Use
  Company Number: US-BAYER-2012-049635

PATIENT
  Age: 25 Year
  Sex: Female

DRUGS (14)
  1. BEYAZ [Suspect]
     Route: 048
  2. YAZ [Suspect]
     Dosage: UNK
     Route: 048
     Dates: start: 201107, end: 201108
  3. GIANVI [Suspect]
     Dosage: UNK
     Route: 048
     Dates: start: 201107, end: 201108
  4. HYDROMET [Concomitant]
     Dosage: ONE TEASPOON, HS
     Dates: start: 20110726
  5. SYMPATHOMIMETICS [Concomitant]
     Indication: PULMONARY CONGESTION
     Dosage: ? TEASPOON, TID AS NEEDED
     Route: 048
     Dates: start: 20110726
  6. AZITHROMYCIN [Concomitant]
     Dosage: 250 MG, UNK
     Route: 048
     Dates: start: 20110726
  7. HYDROCODONE W/APAP [Concomitant]
     Indication: PAIN
     Dosage: 5-500MG 1 TO 2 TABLETS EVERY 4 TO 6 HOURS
     Route: 048
     Dates: start: 20110803
  8. LEVOFLOXACIN [Concomitant]
     Dosage: 500 MG, UNK
     Route: 048
     Dates: start: 20110803
  9. DOXYCYCLINE [Concomitant]
     Dosage: 100 MG, BID
     Route: 048
     Dates: start: 20110803
  10. VIBRAMYCIN [Concomitant]
     Dosage: 100 MG, EVERY DAY
     Route: 048
  11. ROCEPHIN [Concomitant]
  12. ZITHROMAX [Concomitant]
  13. ATIVAN [Concomitant]
  14. CEFTIN [Concomitant]

REACTIONS (8)
  - Pulmonary embolism [Recovered/Resolved]
  - Pulmonary infarction [None]
  - Injury [Recovered/Resolved]
  - General physical health deterioration [Recovered/Resolved]
  - Anxiety [None]
  - Emotional distress [None]
  - Pain [None]
  - Pain [Recovered/Resolved]
